FAERS Safety Report 8582951-X (Version None)
Quarter: 2012Q3

REPORT INFORMATION
  Report Type: 
  Country: None (occurrence: None)
  Receive Date: 20120809
  Receipt Date: 20120806
  Transmission Date: 20120928
  Serious: Yes (Other)
  Sender: FDA-Public Use
  Company Number: JP-PFIZER INC-2012179048

PATIENT
  Age: 40 Year
  Sex: Female

DRUGS (2)
  1. ZITHROMAX [Suspect]
     Dosage: 500 MG, 1X/D
     Route: 048
  2. MUCODYNE [Concomitant]
     Route: 065

REACTIONS (1)
  - HAEMATOCHEZIA [None]
